FAERS Safety Report 14173419 (Version 5)
Quarter: 2018Q1

REPORT INFORMATION
  Report Type: Spontaneous
  Country: JP (occurrence: JP)
  Receive Date: 20171109
  Receipt Date: 20180131
  Transmission Date: 20180508
  Serious: Yes (Death, Life-Threatening, Hospitalization)
  Sender: FDA-Public Use
  Company Number: JP-ROCHE-2019475

PATIENT
  Age: 13 Year
  Sex: Female
  Weight: 42 kg

DRUGS (29)
  1. INTEBAN [Concomitant]
     Active Substance: INDOMETHACIN
     Indication: PAIN PROPHYLAXIS
     Dosage: DOSAGE IS UNCERTAIN. ?AT NECESSITY
     Route: 061
     Dates: start: 20170902, end: 20171121
  2. METHYLPREDNISOLONE. [Concomitant]
     Active Substance: METHYLPREDNISOLONE
     Indication: CYTOKINE RELEASE SYNDROME
     Dosage: DOSAGE IS UNCERTAIN.
     Route: 065
  3. INTRALIPOS [Concomitant]
     Active Substance: SOYBEAN OIL
     Indication: NUTRITIONAL SUPPLEMENTATION
     Route: 042
     Dates: start: 20171024, end: 20171119
  4. TISAGENLECLEUCEL. [Suspect]
     Active Substance: TISAGENLECLEUCEL
     Indication: ACUTE LYMPHOCYTIC LEUKAEMIA
     Dosage: 2.1X10E6 TRANSDUCED VIABLE T-CELLS/KG, 0.86X10E3 TRANSDUCED VIABLE T-CELLS, 2X10E9 TOTAL VIABLE CELL
     Route: 065
     Dates: start: 20170912, end: 20170912
  5. HIRUDOID (HEPARINOIDS) [Concomitant]
     Indication: DRY SKIN
     Dosage: DOSAGE IS UNCERTAIN. ?AT NECESSITY
     Route: 003
     Dates: start: 20170916, end: 20171121
  6. AZUNOL [Concomitant]
     Active Substance: SODIUM GUALENATE
     Indication: INFECTION PROPHYLAXIS
     Dosage: DOSAGE IS UNCERTAIN. ?AT NECESSITY?AZUNOL GARGLE LIQUID
     Route: 049
     Dates: start: 20170906, end: 20171121
  7. AZUNOL OINTMENT [Concomitant]
     Indication: PRURITUS
     Dosage: DOSAGE IS UNCERTAIN. ?AT NECESSITY
     Route: 003
     Dates: start: 20170907, end: 20171121
  8. ALLOPURINOL. [Concomitant]
     Active Substance: ALLOPURINOL
     Indication: PROPHYLAXIS
     Dosage: DOSAGE IS UNCERTAIN. ?AT NECESSITY
     Route: 049
     Dates: start: 20170906, end: 20171121
  9. MIYA-BM [Concomitant]
     Active Substance: CLOSTRIDIUM BUTYRICUM SPORES STRAIN M-55
     Indication: PROPHYLAXIS
     Route: 048
     Dates: start: 20171025
  10. MIDAZOLAM [Concomitant]
     Active Substance: MIDAZOLAM HYDROCHLORIDE
     Indication: CYTOKINE RELEASE SYNDROME
     Route: 042
     Dates: start: 20160917, end: 20171121
  11. HUMULIN R [Concomitant]
     Active Substance: INSULIN HUMAN
     Indication: DIABETES MELLITUS MANAGEMENT
     Route: 042
     Dates: start: 20170916, end: 20171121
  12. AMBISOME [Concomitant]
     Active Substance: AMPHOTERICIN B
     Indication: INFECTION PROPHYLAXIS
     Route: 042
     Dates: start: 20171008, end: 20171120
  13. FENTANYL. [Concomitant]
     Active Substance: FENTANYL
     Indication: SEDATION
     Route: 042
     Dates: start: 20170911, end: 20171121
  14. RESTAMIN [Concomitant]
     Active Substance: DIPHENHYDRAMINE
     Indication: PRURITUS
     Dosage: DOSAGE IS UNCERTAIN. ?AT NECESSITY
     Route: 003
     Dates: start: 20170914, end: 20171031
  15. ATARAX-P [Concomitant]
     Active Substance: HYDROXYZINE HYDROCHLORIDE
     Indication: PRURITUS
     Dosage: DOSAGE IS UNCERTAIN. ?AT NECESSITY
     Route: 042
     Dates: start: 20170914, end: 20171121
  16. OMEPRAZOLE. [Concomitant]
     Active Substance: OMEPRAZOLE
     Indication: GASTRITIS PROPHYLAXIS
     Route: 042
     Dates: start: 20170902, end: 20171121
  17. ACELIO [Concomitant]
     Active Substance: ACETAMINOPHEN
     Indication: CYTOKINE RELEASE SYNDROME
     Dosage: DOSAGE IS UNCERTAIN. ?AT NECESSITY
     Route: 042
     Dates: start: 20170912, end: 20171027
  18. BIOFERMIN R [Concomitant]
     Active Substance: BACILLUS SUBTILIS\LACTOBACILLUS ACIDOPHILUS\STREPTOCOCCUS FAECAIS
     Indication: PROPHYLAXIS
     Route: 048
     Dates: start: 20170928
  19. VITAJECT [Concomitant]
     Active Substance: CYANOCOBALAMIN\PYRIDOXAMINE HYDROCHLORIDE\THIAMINE HYDROCHLORIDE
     Indication: CYTOKINE RELEASE SYNDROME
     Route: 042
     Dates: start: 201708, end: 20171121
  20. CEFOZOPRAN HYDROCHLORIDE [Concomitant]
     Active Substance: CEFOZOPRAN HYDROCHLORIDE
     Indication: CYTOKINE RELEASE SYNDROME
     Dosage: DOSAGE IS UNCERTAIN.
     Route: 065
     Dates: start: 20170912, end: 201709
  21. MEROPENEM. [Concomitant]
     Active Substance: MEROPENEM
     Indication: CYTOKINE RELEASE SYNDROME
     Dosage: DOSAGE IS UNCERTAIN.
     Route: 065
     Dates: start: 20170922, end: 201710
  22. URSO [Concomitant]
     Active Substance: URSODIOL
     Indication: HEPATIC ENZYME INCREASED
     Route: 048
     Dates: start: 20170928
  23. HICALIQ RF [Concomitant]
     Active Substance: CALCIUM GLUCONATE\DEXTROSE\MAGNESIUM SULFATE\POTASSIUM ACETATE\POTASSIUM PHOSPHATE, DIBASIC\ZINC SULFATE
     Indication: CYTOKINE RELEASE SYNDROME
     Route: 042
     Dates: start: 20171020, end: 20171121
  24. PRECEDEX [Concomitant]
     Active Substance: DEXMEDETOMIDINE HYDROCHLORIDE
     Indication: SEDATION
     Dosage: PROPERLY
     Route: 042
     Dates: start: 20170831, end: 20171022
  25. PRIMPERAN [Concomitant]
     Active Substance: METOCLOPRAMIDE HYDROCHLORIDE
     Indication: NAUSEA
     Dosage: DOSAGE IS UNCERTAIN. ?AT NECESSITY
     Route: 042
     Dates: start: 20170904, end: 20171121
  26. ACTEMRA [Suspect]
     Active Substance: TOCILIZUMAB
     Indication: CYTOKINE RELEASE SYNDROME
     Dosage: THE FRACTIONATION DOSE FREQUENCY IS UNCERTAIN. ?DOSE INTERVAL UNCERTAINTY
     Route: 042
     Dates: start: 20170917
  27. AMIPAREN [Concomitant]
     Active Substance: AMINO ACIDS
     Indication: NUTRITIONAL SUPPLEMENTATION
     Route: 042
     Dates: start: 201708, end: 20171121
  28. POSTERISAN [Concomitant]
     Active Substance: LIDOCAINE
     Indication: HAEMORRHOIDS
     Dosage: DOSAGE IS UNCERTAIN. ?AT NECESSITY
     Route: 003
     Dates: start: 20170906, end: 20171004
  29. NAFAMOSTAT [Concomitant]
     Active Substance: NAFAMOSTAT
     Indication: CYTOKINE RELEASE SYNDROME
     Route: 042
     Dates: start: 20170922, end: 20171121

REACTIONS (11)
  - Musculoskeletal stiffness [Unknown]
  - Meningitis bacterial [Recovered/Resolved]
  - Periventricular leukomalacia [Unknown]
  - Enterococcal bacteraemia [Unknown]
  - Hydrocephalus [Unknown]
  - Granulocyte count decreased [Unknown]
  - Roseolovirus test positive [Not Recovered/Not Resolved]
  - Off label use [Unknown]
  - Meningoencephalitis herpetic [Recovering/Resolving]
  - Disease progression [Fatal]
  - Upper airway obstruction [Unknown]

NARRATIVE: CASE EVENT DATE: 201710
